FAERS Safety Report 21083203 (Version 1)
Quarter: 2022Q3

REPORT INFORMATION
  Report Type: Spontaneous
  Country: US (occurrence: US)
  Receive Date: 20220714
  Receipt Date: 20220714
  Transmission Date: 20221027
  Serious: No
  Sender: FDA-Public Use
  Company Number: US-PALATIN TECHNOLOGIES, INC.-US-PALA-22-000017

PATIENT
  Age: 43 Year
  Sex: Female

DRUGS (2)
  1. VYLEESI [Suspect]
     Active Substance: BREMELANOTIDE ACETATE
     Indication: Menopause
     Dosage: UNK
     Dates: start: 202204
  2. VYLEESI [Suspect]
     Active Substance: BREMELANOTIDE ACETATE
     Dosage: UNK
     Dates: start: 202204

REACTIONS (5)
  - Influenza like illness [Recovered/Resolved]
  - Feeling hot [Recovered/Resolved]
  - Flushing [Recovered/Resolved]
  - Dizziness [Recovered/Resolved]
  - Nausea [Recovered/Resolved]

NARRATIVE: CASE EVENT DATE: 20220401
